FAERS Safety Report 18600897 (Version 1)
Quarter: 2020Q4

REPORT INFORMATION
  Report Type: Report from Study
  Country: FR (occurrence: FR)
  Receive Date: 20201210
  Receipt Date: 20201210
  Transmission Date: 20210114
  Serious: Yes (Death)
  Sender: FDA-Public Use
  Company Number: FR-MYLANLABS-2020M1100253

PATIENT
  Age: 79 Year
  Sex: Male

DRUGS (52)
  1. METHOTREXATE. [Suspect]
     Active Substance: METHOTREXATE
     Dosage: 17.5 MG, WEEKLY
     Dates: start: 200510, end: 20060131
  2. METHOTREXATE. [Suspect]
     Active Substance: METHOTREXATE
     Dosage: 5 MG, WEEKLY
     Route: 048
     Dates: start: 20180319
  3. CICLOSPORIN [Suspect]
     Active Substance: CYCLOSPORINE
     Dosage: 175 MG, DAILY
     Route: 048
     Dates: start: 200112, end: 2002
  4. CICLOSPORIN [Suspect]
     Active Substance: CYCLOSPORINE
     Dosage: 25 MG, 2X/DAY
     Route: 048
     Dates: start: 200301, end: 20030304
  5. FUROSEMIDE. [Concomitant]
     Active Substance: FUROSEMIDE
     Dosage: UNK
  6. TARDYFERON [Concomitant]
     Active Substance: FERROUS SULFATE
     Dosage: UNK
  7. KARDEGIC [Concomitant]
     Active Substance: ASPIRIN DL-LYSINE
     Dosage: UNK
  8. RAMIPRIL. [Concomitant]
     Active Substance: RAMIPRIL
     Dosage: UNK
  9. CICLOSPORIN [Suspect]
     Active Substance: CYCLOSPORINE
     Dosage: 110 MG, 2X/DAY
     Route: 048
     Dates: start: 200109, end: 20010926
  10. CICLOSPORIN [Suspect]
     Active Substance: CYCLOSPORINE
     Dosage: 50 MG, 2X/DAY
     Route: 048
     Dates: start: 200212, end: 20030128
  11. IMPORTAL [Concomitant]
     Active Substance: LACTITOL
     Dosage: UNK
  12. PANTOPRAZOLE [Concomitant]
     Active Substance: PANTOPRAZOLE
     Dosage: UNK
  13. NOVONORM [Concomitant]
     Active Substance: REPAGLINIDE
     Dosage: UNK
  14. METHOTREXATE. [Suspect]
     Active Substance: METHOTREXATE
     Dosage: 15 MG, WEEKLY
     Route: 048
     Dates: start: 20120903, end: 20130719
  15. ACITRETIN. [Suspect]
     Active Substance: ACITRETIN
     Dosage: 20 MG, DAILY
     Route: 048
     Dates: start: 20140331, end: 2016
  16. ACITRETIN. [Suspect]
     Active Substance: ACITRETIN
     Dosage: 10 MG, DAILY
     Route: 048
     Dates: start: 2016, end: 201704
  17. ACITRETIN. [Suspect]
     Active Substance: ACITRETIN
     Dosage: 10 MG, DAILY
     Route: 048
     Dates: start: 20181210
  18. CICLOSPORIN [Suspect]
     Active Substance: CYCLOSPORINE
     Dosage: 75 MG, 2X/DAY
     Route: 048
     Dates: start: 200012, end: 200107
  19. VASELINE                           /00473501/ [Concomitant]
     Active Substance: PARAFFIN
     Dosage: UNK
     Dates: start: 20181210
  20. HUMALOG [Concomitant]
     Active Substance: INSULIN LISPRO
     Dosage: UNK
  21. METHOTREXATE. [Suspect]
     Active Substance: METHOTREXATE
     Dosage: 35 MG, WEEKLY
     Route: 048
     Dates: start: 200002, end: 200011
  22. METHOTREXATE. [Suspect]
     Active Substance: METHOTREXATE
     Dosage: 20 MG, WEEKLY
     Route: 048
     Dates: start: 20050308, end: 20051011
  23. ACITRETIN. [Suspect]
     Active Substance: ACITRETIN
     Dosage: 25 MG, DAILY
     Route: 048
     Dates: start: 200403, end: 20050111
  24. ACITRETIN. [Suspect]
     Active Substance: ACITRETIN
     Dosage: 20 MG, DAILY
     Route: 048
     Dates: start: 200501, end: 20070116
  25. ACITRETIN. [Suspect]
     Active Substance: ACITRETIN
     Dosage: 20 MG, DAILY
     Route: 048
     Dates: start: 2007, end: 20131021
  26. ACITRETIN. [Suspect]
     Active Substance: ACITRETIN
     Dosage: 10 MG, DAILY
     Route: 048
     Dates: start: 20131021, end: 20140331
  27. CICLOSPORIN [Suspect]
     Active Substance: CYCLOSPORINE
     Dosage: 100 MG, 2X/DAY
     Route: 048
     Dates: start: 200109, end: 200112
  28. PERMIXON [Concomitant]
     Active Substance: HERBALS\SAW PALMETTO
     Dosage: UNK
  29. LEVOTHYROX [Concomitant]
     Active Substance: LEVOTHYROXINE
     Dosage: UNK
  30. ATORVASTATIN [Concomitant]
     Active Substance: ATORVASTATIN
     Dosage: UNK
  31. MOVICOL [Concomitant]
     Active Substance: POLYETHYLENE GLYCOL 3350\POTASSIUM CHLORIDE\SODIUM BICARBONATE\SODIUM CHLORIDE
     Dosage: UNK
  32. METHOTREXATE. [Suspect]
     Active Substance: METHOTREXATE
     Dosage: 7.5 MG, WEEKLY
     Route: 048
     Dates: start: 20130719, end: 20180319
  33. ACITRETIN. [Suspect]
     Active Substance: ACITRETIN
     Indication: PSORIASIS
     Dosage: 25 MG, DAILY
     Route: 048
     Dates: start: 19981125, end: 200109
  34. ACITRETIN. [Suspect]
     Active Substance: ACITRETIN
     Dosage: 30 MG, DAILY
     Route: 048
     Dates: start: 200109, end: 20031230
  35. CICLOSPORIN [Suspect]
     Active Substance: CYCLOSPORINE
     Indication: PSORIASIS
     Dosage: 65 MG, 2X/DAY
     Route: 048
     Dates: start: 20001117, end: 20001211
  36. CICLOSPORIN [Suspect]
     Active Substance: CYCLOSPORINE
     Dosage: 65 MG, DAILY
     Route: 048
     Dates: start: 200107, end: 200109
  37. CICLOSPORIN [Suspect]
     Active Substance: CYCLOSPORINE
     Dosage: 75 MG, 2X/DAY
     Route: 048
     Dates: start: 2002, end: 20021224
  38. MUPIROCIN. [Concomitant]
     Active Substance: MUPIROCIN
     Dosage: UNK
     Dates: start: 20150330
  39. METHOTREXATE. [Suspect]
     Active Substance: METHOTREXATE
     Dosage: 15 MG, WEEKLY
     Dates: start: 200601, end: 20060620
  40. METHOTREXATE. [Suspect]
     Active Substance: METHOTREXATE
     Dosage: 20 MG, WEEKLY
     Route: 048
     Dates: start: 200606, end: 20120903
  41. ACITRETIN. [Suspect]
     Active Substance: ACITRETIN
     Dosage: 20 MG, DAILY
     Route: 048
     Dates: start: 20031230, end: 20040316
  42. ACITRETIN. [Suspect]
     Active Substance: ACITRETIN
     Dosage: 15 MG, DAILY
     Route: 048
     Dates: start: 20070116, end: 2007
  43. ACITRETIN. [Suspect]
     Active Substance: ACITRETIN
     Dosage: 20 MG, DAILY
     Route: 048
     Dates: start: 201704, end: 20181210
  44. INSULIN GLARGINE [Concomitant]
     Active Substance: INSULIN GLARGINE
     Dosage: UNK
  45. PERINDOPRIL/INDAPAMIDE KRKA [Concomitant]
     Dosage: UNK
  46. DEXERYL                            /01579901/ [Concomitant]
     Active Substance: GLYCERIN\MINERAL OIL\PETROLATUM
     Dosage: UNK
     Dates: start: 20150330
  47. CALCIDOSE                          /07357001/ [Concomitant]
     Active Substance: CALCIUM CARBONATE
     Dosage: UNK
  48. CICAPLAST [Concomitant]
     Dosage: UNK
  49. UN ALFA [Concomitant]
     Active Substance: ALFACALCIDOL
     Dosage: UNK
  50. METHOTREXATE. [Suspect]
     Active Substance: METHOTREXATE
     Indication: PSORIASIS
     Dosage: 25 MG, WEEKLY
     Route: 048
     Dates: start: 199910, end: 20000204
  51. CICLOSPORIN [Suspect]
     Active Substance: CYCLOSPORINE
     Dosage: 125 MG, DAILY
     Route: 048
     Dates: start: 200205, end: 200208
  52. DIFFU K [Concomitant]
     Active Substance: POTASSIUM CHLORIDE
     Dosage: UNK

REACTIONS (1)
  - COVID-19 [Fatal]

NARRATIVE: CASE EVENT DATE: 20201025
